FAERS Safety Report 14153347 (Version 3)
Quarter: 2019Q1

REPORT INFORMATION
  Report Type: Spontaneous
  Country: US (occurrence: US)
  Receive Date: 20171102
  Receipt Date: 20190322
  Transmission Date: 20190417
  Serious: No
  Sender: FDA-Public Use
  Company Number: US-SA-2017SA166230

PATIENT
  Age: 63 Year
  Sex: Female

DRUGS (3)
  1. PRALUENT [Suspect]
     Active Substance: ALIROCUMAB
     Dosage: UNK
     Route: 058
     Dates: start: 201810
  2. PRALUENT [Suspect]
     Active Substance: ALIROCUMAB
     Dosage: 150 MG,UNK
     Route: 058
     Dates: start: 2017, end: 20181120
  3. PRALUENT [Suspect]
     Active Substance: ALIROCUMAB
     Dosage: 75 MG,UNK
     Route: 058
     Dates: start: 20160914

REACTIONS (5)
  - Rhinorrhoea [Unknown]
  - Rash erythematous [Unknown]
  - Oropharyngeal pain [Unknown]
  - Cough [Unknown]
  - Nasopharyngitis [Unknown]

NARRATIVE: CASE EVENT DATE: 201706
